FAERS Safety Report 24043561 (Version 2)
Quarter: 2024Q3

REPORT INFORMATION
  Report Type: Spontaneous
  Country: US (occurrence: US)
  Receive Date: 20240703
  Receipt Date: 20240703
  Transmission Date: 20241016
  Serious: No
  Sender: ABBVIE
  Company Number: US-ABBVIE-5818524

PATIENT
  Sex: Female

DRUGS (1)
  1. NAMENDA XR [Suspect]
     Active Substance: MEMANTINE HYDROCHLORIDE
     Indication: Disturbance in attention
     Dosage: STRENGTH :7 MG
     Route: 048
     Dates: start: 2019

REACTIONS (3)
  - Disturbance in attention [Unknown]
  - Off label use [Unknown]
  - Mental impairment [Unknown]

NARRATIVE: CASE EVENT DATE: 20190101
